FAERS Safety Report 5973394-3 (Version None)
Quarter: 2008Q4

REPORT INFORMATION
  Report Type: 
  Country: None (occurrence: None)
  Receive Date: 20081201
  Receipt Date: 20081120
  Transmission Date: 20090506
  Serious: Yes (Hospitalization, Other)
  Sender: FDA-Public Use
  Company Number: PHHO2008FR13781

PATIENT
  Sex: Female
  Weight: 45 kg

DRUGS (4)
  1. ZOLEDRONATE T29581+SOLINJ+BM [Suspect]
     Indication: BONE SARCOMA
     Dosage: 2.25 MG, UNK
     Route: 042
     Dates: start: 20081110
  2. METHOTREXATE [Concomitant]
     Indication: BONE SARCOMA
     Dosage: 17.4 G, UNK
     Route: 042
     Dates: start: 20081106
  3. CALCIUM [Concomitant]
  4. VITAMIN D [Concomitant]

REACTIONS (2)
  - HYPOCALCAEMIA [None]
  - SEPSIS [None]
